FAERS Safety Report 6305216-5 (Version None)
Quarter: 2009Q3

REPORT INFORMATION
  Report Type: 
  Country: None (occurrence: None)
  Receive Date: 20090811
  Receipt Date: 20090806
  Transmission Date: 20100115
  Serious: Yes (Hospitalization)
  Sender: FDA-Public Use
  Company Number: US-KINGPHARMUSA00001-K200900582

PATIENT
  Age: 77 Year
  Sex: Male

DRUGS (4)
  1. ALTACE [Suspect]
     Indication: CARDIOMYOPATHY
     Dosage: 10 MG, QD
     Route: 048
     Dates: start: 20090423
  2. ALTACE [Suspect]
     Indication: CARDIAC FAILURE
     Dosage: 2.5 MG, BID
     Route: 048
     Dates: start: 20080701, end: 20081008
  3. ALTACE [Suspect]
     Dosage: 7.5 MG, QD
     Dates: start: 20081009, end: 20090422
  4. ALTACE [Suspect]
     Dosage: 7.5 MG, QD
     Route: 048
     Dates: start: 20090504

REACTIONS (4)
  - ASTHENIA [None]
  - BILE DUCT STENOSIS [None]
  - CHOLANGITIS [None]
  - JAUNDICE CHOLESTATIC [None]
